FAERS Safety Report 10988284 (Version 2)
Quarter: 2015Q2

REPORT INFORMATION
  Report Type: Spontaneous
  Country: US (occurrence: US)
  Receive Date: 20150404
  Receipt Date: 20150525
  Transmission Date: 20150821
  Serious: No
  Sender: FDA-Public Use
  Company Number: US-JNJFOC-20150201892

PATIENT
  Age: 74 Year
  Sex: Female
  Weight: 107.5 kg

DRUGS (2)
  1. REMICADE [Suspect]
     Active Substance: INFLIXIMAB
     Indication: RHEUMATOID ARTHRITIS
     Route: 042
     Dates: end: 201412
  2. REMICADE [Suspect]
     Active Substance: INFLIXIMAB
     Indication: RHEUMATOID ARTHRITIS
     Route: 042
     Dates: start: 201412

REACTIONS (8)
  - Gait disturbance [Unknown]
  - Pruritus [Unknown]
  - Alopecia [Unknown]
  - Hypokinesia [Recovering/Resolving]
  - Weight increased [Unknown]
  - Erythema [Unknown]
  - Drug ineffective [Unknown]
  - Infusion related reaction [Unknown]

NARRATIVE: CASE EVENT DATE: 201411
